FAERS Safety Report 12448783 (Version 2)
Quarter: 2016Q2

REPORT INFORMATION
  Report Type: Report from Study
  Country: US (occurrence: US)
  Receive Date: 20160608
  Receipt Date: 20160617
  Transmission Date: 20160815
  Serious: Yes (Hospitalization, Other)
  Sender: FDA-Public Use
  Company Number: US-BAYER-2015-493526

PATIENT
  Age: 62 Year
  Sex: Female

DRUGS (21)
  1. ADEMPAS [Suspect]
     Active Substance: RIOCIGUAT
     Indication: PULMONARY ARTERIAL HYPERTENSION
     Dosage: 1.5 MG, TID
  2. ADEMPAS [Suspect]
     Active Substance: RIOCIGUAT
     Indication: PULMONARY ARTERIAL HYPERTENSION
     Dosage: 2 MG, TID
     Route: 048
     Dates: start: 20160330
  3. POTASSIUM [Concomitant]
     Active Substance: POTASSIUM
  4. FUROSEMIDE. [Concomitant]
     Active Substance: FUROSEMIDE
  5. BACLOFEN. [Concomitant]
     Active Substance: BACLOFEN
  6. LEVOTHYROXINE. [Concomitant]
     Active Substance: LEVOTHYROXINE
  7. HYDROMORPHONE [Concomitant]
     Active Substance: HYDROMORPHONE
  8. DIGOXIN. [Concomitant]
     Active Substance: DIGOXIN
  9. ADEMPAS [Suspect]
     Active Substance: RIOCIGUAT
     Indication: PULMONARY ARTERIAL HYPERTENSION
     Dosage: 2.5 MG, TID
  10. WARFARIN [Concomitant]
     Active Substance: WARFARIN
  11. ADEMPAS [Suspect]
     Active Substance: RIOCIGUAT
     Indication: PULMONARY ARTERIAL HYPERTENSION
     Dosage: UNK
     Route: 048
     Dates: start: 20150413
  12. UPTRAVI [Suspect]
     Active Substance: SELEXIPAG
  13. FENOFIBRATE. [Concomitant]
     Active Substance: FENOFIBRATE
  14. ALBUTEROL. [Concomitant]
     Active Substance: ALBUTEROL
  15. OLOPATADINE [Concomitant]
     Active Substance: OLOPATADINE
  16. VENTAVIS [Suspect]
     Active Substance: ILOPROST
     Indication: PULMONARY ARTERIAL HYPERTENSION
     Dosage: 5 MCG, 6 TO 9 TIMES DAILY
     Route: 055
     Dates: start: 20060428
  17. OPSUMIT [Suspect]
     Active Substance: MACITENTAN
     Indication: PULMONARY ARTERIAL HYPERTENSION
     Dosage: 10 MG, QD
     Route: 048
     Dates: start: 20140825
  18. TEMAZEPAM. [Concomitant]
     Active Substance: TEMAZEPAM
  19. SPIRONOLACTONE. [Concomitant]
     Active Substance: SPIRONOLACTONE
  20. LORATADINE. [Concomitant]
     Active Substance: LORATADINE
  21. ATORVASTATIN [Concomitant]
     Active Substance: ATORVASTATIN

REACTIONS (12)
  - Dyspnoea [Not Recovered/Not Resolved]
  - Dyspnoea [None]
  - Pyrexia [Recovered/Resolved]
  - Mastitis [Recovered/Resolved]
  - Dizziness [Recovered/Resolved]
  - Infection [None]
  - Pulmonary congestion [Unknown]
  - Oxygen saturation decreased [None]
  - Viral infection [None]
  - Hypotension [Recovered/Resolved]
  - Rales [Unknown]
  - Cough [Recovering/Resolving]

NARRATIVE: CASE EVENT DATE: 20150601
